FAERS Safety Report 24283312 (Version 1)
Quarter: 2024Q3

REPORT INFORMATION
  Report Type: Spontaneous
  Country: JP (occurrence: JP)
  Receive Date: 20240904
  Receipt Date: 20240904
  Transmission Date: 20241017
  Serious: Yes (Hospitalization)
  Sender: LUNDBECK
  Company Number: JP-LUNDBECK-DKLU4003737

PATIENT

DRUGS (4)
  1. DROXIDOPA [Suspect]
     Active Substance: DROXIDOPA
     Indication: Parkinson^s disease
     Dosage: 400 MILLIGRAM
     Route: 048
  2. CARBIDOPA\LEVODOPA [Concomitant]
     Active Substance: CARBIDOPA\LEVODOPA
     Indication: Product used for unknown indication
  3. ROPINIROLE HYDROCHLORIDE [Concomitant]
     Active Substance: ROPINIROLE HYDROCHLORIDE
     Indication: Product used for unknown indication
  4. AMANTADINE HYDROCHLORIDE [Concomitant]
     Active Substance: AMANTADINE HYDROCHLORIDE
     Indication: Product used for unknown indication
     Route: 048

REACTIONS (1)
  - Dysphagia [Recovered/Resolved]
